FAERS Safety Report 23793664 (Version 1)
Quarter: 2024Q2

REPORT INFORMATION
  Report Type: Spontaneous
  Country: US (occurrence: None)
  Receive Date: 20240426
  Receipt Date: 20240426
  Transmission Date: 20240716
  Serious: No
  Sender: FDA-Public Use
  Company Number: None

PATIENT
  Age: 47 Year
  Sex: Female

DRUGS (1)
  1. AMBRISENTAN [Suspect]
     Active Substance: AMBRISENTAN
     Indication: Pulmonary arterial hypertension
     Dosage: ?5MG QD ORAL
     Route: 048
     Dates: start: 20240306

REACTIONS (5)
  - Breast pain [None]
  - Breast swelling [None]
  - Breast tenderness [None]
  - Breast mass [None]
  - Erythema [None]

NARRATIVE: CASE EVENT DATE: 20240426
